FAERS Safety Report 13599144 (Version 3)
Quarter: 2017Q3

REPORT INFORMATION
  Report Type: Report from Study
  Country: None (occurrence: US)
  Receive Date: 20170531
  Receipt Date: 20170727
  Transmission Date: 20171127
  Serious: Yes (Hospitalization, Other)
  Sender: FDA-Public Use
  Company Number: US-ABBVIE-17P-163-1989819-00

PATIENT
  Age: 66 Year
  Sex: Female
  Weight: 70.3 kg

DRUGS (20)
  1. VINCRISTINE [Concomitant]
     Active Substance: VINCRISTINE
     Indication: DIFFUSE LARGE B-CELL LYMPHOMA
     Route: 042
     Dates: start: 20170508, end: 20170511
  2. ALLEGRA [Concomitant]
     Active Substance: FEXOFENADINE HYDROCHLORIDE
     Indication: PRODUCT USED FOR UNKNOWN INDICATION
     Route: 048
  3. COMPAZINE [Concomitant]
     Active Substance: PROCHLORPERAZINE MALEATE
     Indication: PRODUCT USED FOR UNKNOWN INDICATION
     Route: 048
  4. ERGOCALCIFEROL. [Concomitant]
     Active Substance: ERGOCALCIFEROL
     Indication: PRODUCT USED FOR UNKNOWN INDICATION
     Route: 048
  5. CRESTOR [Concomitant]
     Active Substance: ROSUVASTATIN CALCIUM
     Indication: PRODUCT USED FOR UNKNOWN INDICATION
     Route: 048
  6. TRILIPIX [Concomitant]
     Active Substance: FENOFIBRIC ACID
     Indication: PRODUCT USED FOR UNKNOWN INDICATION
     Route: 048
  7. MYRBETRIQ [Concomitant]
     Active Substance: MIRABEGRON
     Indication: PRODUCT USED FOR UNKNOWN INDICATION
     Route: 048
  8. ATIVAN [Concomitant]
     Active Substance: LORAZEPAM
     Indication: PRODUCT USED FOR UNKNOWN INDICATION
     Route: 048
  9. NEULASTA [Concomitant]
     Active Substance: PEGFILGRASTIM
     Indication: PRODUCT USED FOR UNKNOWN INDICATION
  10. METFORMIN [Concomitant]
     Active Substance: METFORMIN HYDROCHLORIDE
     Indication: PRODUCT USED FOR UNKNOWN INDICATION
     Route: 048
  11. DOXORUBICIN [Concomitant]
     Active Substance: DOXORUBICIN
     Indication: DIFFUSE LARGE B-CELL LYMPHOMA
     Dates: start: 20170508, end: 20170513
  12. CYCLOPHOSPHAMIDE. [Concomitant]
     Active Substance: CYCLOPHOSPHAMIDE
     Indication: DIFFUSE LARGE B-CELL LYMPHOMA
     Dates: start: 20170508, end: 20170513
  13. BACTRIM [Concomitant]
     Active Substance: SULFAMETHOXAZOLE\TRIMETHOPRIM
     Indication: PRODUCT USED FOR UNKNOWN INDICATION
     Dosage: 800-160 MG. (MONDAY, WEDNESDAY AND FRIDAY)
     Route: 048
  14. ETOPOSIDE. [Concomitant]
     Active Substance: ETOPOSIDE
     Indication: DIFFUSE LARGE B-CELL LYMPHOMA
     Dates: start: 20170508, end: 20170513
  15. NEXIUM [Concomitant]
     Active Substance: ESOMEPRAZOLE MAGNESIUM
     Indication: PRODUCT USED FOR UNKNOWN INDICATION
     Route: 048
  16. VENETOCLAX. [Suspect]
     Active Substance: VENETOCLAX
     Indication: DIFFUSE LARGE B-CELL LYMPHOMA
     Route: 048
     Dates: start: 20170510, end: 20170516
  17. ALLOPURINOL. [Concomitant]
     Active Substance: ALLOPURINOL
     Indication: PRODUCT USED FOR UNKNOWN INDICATION
     Route: 048
  18. ACYCLOVIR. [Concomitant]
     Active Substance: ACYCLOVIR
     Indication: PRODUCT USED FOR UNKNOWN INDICATION
     Route: 048
  19. SYNTHROID [Concomitant]
     Active Substance: LEVOTHYROXINE SODIUM
     Indication: PRODUCT USED FOR UNKNOWN INDICATION
     Route: 048
  20. CYMBALTA [Concomitant]
     Active Substance: DULOXETINE HYDROCHLORIDE
     Indication: PRODUCT USED FOR UNKNOWN INDICATION
     Route: 048

REACTIONS (33)
  - Vomiting [Unknown]
  - Hypocalcaemia [Recovered/Resolved]
  - Peripheral sensory neuropathy [Unknown]
  - Vomiting [Recovered/Resolved]
  - Muscular weakness [Unknown]
  - Nausea [Unknown]
  - Lymphocyte count decreased [Recovered/Resolved]
  - Neutrophil count decreased [Recovered/Resolved]
  - Dysgeusia [Recovered/Resolved]
  - Hypoalbuminaemia [Recovered/Resolved]
  - Anaemia [Recovered/Resolved]
  - Hyponatraemia [Recovered/Resolved]
  - Tachycardia [Unknown]
  - Hypertension [Unknown]
  - Weight decreased [Unknown]
  - Constipation [Unknown]
  - Abdominal distension [Unknown]
  - Hypokalaemia [Recovered/Resolved]
  - Aspartate aminotransferase increased [Recovered/Resolved]
  - Dry mouth [Recovered/Resolved]
  - Platelet count decreased [Recovered/Resolved]
  - Diarrhoea [Recovered/Resolved]
  - Herpes simplex [Unknown]
  - White blood cell count decreased [Recovered/Resolved]
  - Hypophosphataemia [Recovered/Resolved]
  - Pyrexia [Recovered/Resolved]
  - Insomnia [Recovered/Resolved]
  - Body temperature increased [Unknown]
  - Anaemia [Recovered/Resolved]
  - Fatigue [Not Recovered/Not Resolved]
  - Hypomagnesaemia [Recovered/Resolved]
  - Sinus tachycardia [Not Recovered/Not Resolved]
  - Hypernatraemia [Recovered/Resolved]

NARRATIVE: CASE EVENT DATE: 20170510
